FAERS Safety Report 6383482-8 (Version None)
Quarter: 2009Q4

REPORT INFORMATION
  Report Type: 
  Country: None (occurrence: None)
  Receive Date: 20091001
  Receipt Date: 20090918
  Transmission Date: 20100525
  Serious: Yes (Death, Other)
  Sender: FDA-Public Use
  Company Number: BR-ROCHE-649101

PATIENT
  Age: 35 Year
  Sex: Female

DRUGS (2)
  1. TAMIFLU [Suspect]
     Dosage: THERAPY STOP DATE: 2009
     Route: 065
     Dates: start: 20090727
  2. CEFTRIAXONE [Concomitant]
     Dates: start: 20090101, end: 20090101

REACTIONS (3)
  - DRUG INEFFECTIVE [None]
  - RASH [None]
  - SEPSIS [None]
